FAERS Safety Report 7603365-2 (Version None)
Quarter: 2011Q3

REPORT INFORMATION
  Report Type: 
  Country: None (occurrence: None)
  Receive Date: 20110712
  Receipt Date: 20110701
  Transmission Date: 20111222
  Serious: Yes (Hospitalization, Disabling, Other)
  Sender: FDA-Public Use
  Company Number: PHHY2011JP53782

PATIENT
  Age: 41 Year
  Sex: Male

DRUGS (2)
  1. NEORAL [Suspect]
     Indication: PSORIASIS
     Dosage: 75 MG
     Route: 048
     Dates: start: 20100529, end: 20100908
  2. ANTIDEPRESSANTS [Concomitant]

REACTIONS (5)
  - DYSLALIA [None]
  - GAIT DISTURBANCE [None]
  - LEUKOENCEPHALOPATHY [None]
  - DEPRESSION [None]
  - FATIGUE [None]
